FAERS Safety Report 4945440-7 (Version None)
Quarter: 2006Q1

REPORT INFORMATION
  Report Type: 
  Country: None (occurrence: None)
  Receive Date: 20060316
  Receipt Date: 20060313
  Transmission Date: 20060701
  Serious: Yes (Hospitalization)
  Sender: FDA-Public Use
  Company Number: US-GLAXOSMITHKLINE-A0597339A

PATIENT
  Age: 40 Year
  Sex: Male

DRUGS (9)
  1. LAMICTAL [Suspect]
     Indication: BIPOLAR DISORDER
     Dosage: 50MG PER DAY
     Route: 048
     Dates: start: 20060216
  2. HYDROXYZINE HCL [Concomitant]
  3. METHOTREXATE [Concomitant]
  4. RISPERDAL [Concomitant]
  5. AMBIEN [Concomitant]
  6. PREDNISONE [Concomitant]
  7. PREVACID [Concomitant]
  8. EFFEXOR XR [Concomitant]
  9. LITHIUM CARBONATE [Concomitant]

REACTIONS (3)
  - DEEP VEIN THROMBOSIS [None]
  - POOR QUALITY DRUG ADMINISTERED [None]
  - RASH [None]
